FAERS Safety Report 9058331 (Version 2)
Quarter: 2013Q2

REPORT INFORMATION
  Report Type: Spontaneous
  Country: US (occurrence: US)
  Receive Date: 20130211
  Receipt Date: 20130402
  Transmission Date: 20140414
  Serious: Yes (Hospitalization, Other)
  Sender: FDA-Public Use
  Company Number: US-BAYER-2013-015508

PATIENT
  Age: 19 Year
  Sex: Female
  Weight: 108 kg

DRUGS (12)
  1. YAZ [Suspect]
     Dosage: UNK
     Dates: start: 200807, end: 200905
  2. METFORMIN [Concomitant]
     Indication: DIABETES MELLITUS
  3. NORMAL SALINE [Concomitant]
     Route: 042
  4. BENADRYL [Concomitant]
     Indication: ANALGESIC THERAPY
  5. DILAUDID [Concomitant]
  6. DROPERIDOL [Concomitant]
  7. TRADOL [Concomitant]
     Route: 042
  8. DIAZEPAM [Concomitant]
     Indication: VERTIGO
  9. OPIOIDS [Concomitant]
     Route: 042
  10. ANTIEMETICS AND ANTINAUSEANTS [Concomitant]
  11. DIAMOX [Concomitant]
  12. INSULIN [INSULIN] [Concomitant]

REACTIONS (8)
  - Cerebrovascular accident [None]
  - Pain [None]
  - Injury [None]
  - General physical health deterioration [None]
  - Intracranial venous sinus thrombosis [Recovering/Resolving]
  - Emotional distress [None]
  - Anxiety [None]
  - Pain [None]
